FAERS Safety Report 15598287 (Version 1)
Quarter: 2018Q4

REPORT INFORMATION
  Report Type: Spontaneous
  Country: US (occurrence: US)
  Receive Date: 20181108
  Receipt Date: 20181108
  Transmission Date: 20190205
  Serious: No
  Sender: FDA-Public Use
  Company Number: US-ALLERGAN-1848856US

PATIENT
  Age: 70 Year
  Sex: Male

DRUGS (1)
  1. SILODOSIN - BP [Suspect]
     Active Substance: SILODOSIN
     Indication: PRODUCT USED FOR UNKNOWN INDICATION
     Dosage: UNK
     Route: 065

REACTIONS (5)
  - Paranasal sinus discomfort [Unknown]
  - Upper-airway cough syndrome [Unknown]
  - Cough [Unknown]
  - Nasal congestion [Unknown]
  - Drug ineffective [Unknown]
